FAERS Safety Report 17360944 (Version 1)
Quarter: 2020Q1

REPORT INFORMATION
  Report Type: Spontaneous
  Country: US (occurrence: US)
  Receive Date: 20200117
  Receipt Date: 20200117
  Transmission Date: 20200409
  Serious: No
  Sender: FDA-Public Use
  Company Number: None

PATIENT
  Sex: Female

DRUGS (1)
  1. TOBRAMYCIN (56AMPS/28DAY) [Suspect]
     Active Substance: TOBRAMYCIN
     Indication: RESPIRATORY DISORDER
     Route: 055
     Dates: start: 201910

REACTIONS (2)
  - Therapy cessation [None]
  - Dyspnoea [None]
